FAERS Safety Report 4352342-6 (Version None)
Quarter: 2004Q2

REPORT INFORMATION
  Report Type: 
  Country: None (occurrence: None)
  Receive Date: 20040427
  Receipt Date: 20040112
  Transmission Date: 20050107
  Serious: Yes (Life-Threatening, Disabling)
  Sender: FDA-Public Use
  Company Number: WAES 0401USA00812

PATIENT
  Age: 57 Year
  Sex: Male

DRUGS (5)
  1. SINGULAIR [Suspect]
     Indication: BRONCHITIS CHRONIC
     Dosage: 10 MG/PO
     Route: 048
  2. PLAVIX [Concomitant]
  3. PREVACID [Concomitant]
  4. BENZONATATE [Concomitant]
  5. PROPRANOLOL HYDROCHLORIDE [Concomitant]

REACTIONS (1)
  - HEADACHE [None]
